FAERS Safety Report 22146990 (Version 1)
Quarter: 2023Q1

REPORT INFORMATION
  Report Type: Spontaneous
  Country: US (occurrence: None)
  Receive Date: 20230327
  Receipt Date: 20230327
  Transmission Date: 20230417
  Serious: Yes (Hospitalization, Disabling)
  Sender: FDA-Public Use
  Company Number: None

PATIENT
  Age: 69 Year
  Sex: Female

DRUGS (18)
  1. HUMIRA [Suspect]
     Active Substance: ADALIMUMAB
     Indication: Rheumatoid arthritis
     Dosage: 40MG/0.4ML Q WEEKLY IM
     Route: 030
     Dates: start: 20220616
  2. B-12 5000MCG CAPSULES [Concomitant]
  3. IRON 325MG TABLETS [Concomitant]
  4. AZITHROMYCIN [Concomitant]
     Active Substance: AZITHROMYCIN
  5. PREGABALIN [Concomitant]
     Active Substance: PREGABALIN
  6. ROPINIROLE [Concomitant]
     Active Substance: ROPINIROLE
  7. COLACE 100MG CAPSULES [Concomitant]
  8. ALIGN PROBIOTIC CAPSULE [Concomitant]
  9. B-COMPLEX CAPSULES [Concomitant]
  10. CALTRATE 600 +D TAB [Concomitant]
  11. MULTIVITAMIN TABLETS [Concomitant]
  12. ADDERALL [Concomitant]
     Active Substance: AMPHETAMINE ASPARTATE\AMPHETAMINE SULFATE\DEXTROAMPHETAMINE SACCHARATE\DEXTROAMPHETAMINE SULFATE
  13. VENLAFAXINE HYDROCHLORIDE [Concomitant]
     Active Substance: VENLAFAXINE HYDROCHLORIDE
  14. OMEPRAZOLE [Concomitant]
     Active Substance: OMEPRAZOLE
  15. TRELEGY ELLIPTA 200-62.5MG [Concomitant]
  16. LATUDA [Concomitant]
     Active Substance: LURASIDONE HYDROCHLORIDE
  17. MTX 2.5MG [Concomitant]
  18. LEUCOVORIN 10MG [Concomitant]

REACTIONS (1)
  - Pneumonia [None]

NARRATIVE: CASE EVENT DATE: 20230314
